FAERS Safety Report 17981975 (Version 1)
Quarter: 2020Q3

REPORT INFORMATION
  Report Type: Spontaneous
  Country: US (occurrence: US)
  Receive Date: 20200706
  Receipt Date: 20200706
  Transmission Date: 20201103
  Serious: Yes (Hospitalization, Other)
  Sender: FDA-Public Use
  Company Number: US-HORIZON-KRY-0892-2020

PATIENT
  Age: 34 Year
  Sex: Female

DRUGS (1)
  1. KRYSTEXXA [Suspect]
     Active Substance: PEGLOTICASE
     Indication: GOUTY TOPHUS
     Dosage: 8MG IV EVERY 2 WEEKS
     Route: 042
     Dates: start: 20190815, end: 201910

REACTIONS (4)
  - Therapeutic response decreased [Unknown]
  - Clostridium difficile infection [Unknown]
  - Gout [Recovered/Resolved]
  - Crohn^s disease [Unknown]

NARRATIVE: CASE EVENT DATE: 2019
